FAERS Safety Report 8220353 (Version 2)
Quarter: 2014Q1

REPORT INFORMATION
  Report Type: Spontaneous
  Country: US (occurrence: US)
  Receive Date: 20111101
  Receipt Date: 20140227
  Transmission Date: 20141002
  Serious: Yes (Disabling)
  Sender: FDA-Public Use
  Company Number: US-AMGEN-USASP2011031176

PATIENT
  Age: 50 Year
  Sex: Female
  Weight: 82.99 kg

DRUGS (10)
  1. ENBREL [Suspect]
     Indication: ANKYLOSING SPONDYLITIS
     Dosage: 50 MG, Q2WK
     Route: 058
     Dates: start: 2011, end: 2011
  2. IBUPROFEN [Concomitant]
     Dosage: UNK
     Route: 048
  3. METHOTREXATE [Concomitant]
     Dosage: 2.5 MG, UNK
     Route: 048
  4. OMEPRAZOLE [Concomitant]
     Dosage: 20 MG, UNK
     Route: 048
  5. FOLIC ACID [Concomitant]
     Dosage: 1 MG, UNK
     Route: 048
  6. ALBUTEROL [Concomitant]
     Dosage: 0.083 %, UNK
     Route: 055
  7. FLONASE [Concomitant]
     Dosage: 0.05 %, UNK
     Route: 055
  8. PRILOSEC                           /00661201/ [Concomitant]
     Dosage: UNK
  9. VITAMIN D                          /00107901/ [Concomitant]
     Dosage: UNK
  10. MULTIVITAMINS, PLAIN [Concomitant]
     Dosage: UNK

REACTIONS (6)
  - Injection site rash [Recovered/Resolved]
  - Injection site warmth [Unknown]
  - Injection site erythema [Unknown]
  - Injection site swelling [Unknown]
  - Injection site pruritus [Unknown]
  - Injection site urticaria [Unknown]
